FAERS Safety Report 8988284 (Version 1)
Quarter: 2012Q4

REPORT INFORMATION
  Report Type: 
  Country: FR (occurrence: FR)
  Receive Date: 20121227
  Receipt Date: 20121227
  Transmission Date: 20130627
  Serious: Yes (Hospitalization)
  Sender: FDA-Public Use
  Company Number: FR-ROCHE-1170313

PATIENT
  Age: 56 Year
  Sex: Female

DRUGS (9)
  1. RIVOTRIL [Suspect]
     Indication: PRODUCT USED FOR UNKNOWN INDICATION
     Route: 065
  2. ABILIFY [Suspect]
     Indication: PRODUCT USED FOR UNKNOWN INDICATION
     Route: 048
     Dates: end: 20120425
  3. ABILIFY [Suspect]
     Route: 065
     Dates: start: 20120511
  4. DEPAKOTE [Suspect]
     Indication: PRODUCT USED FOR UNKNOWN INDICATION
     Route: 048
     Dates: start: 20120416, end: 20120425
  5. ALPRAZOLAM [Concomitant]
  6. IBUPROFENE [Concomitant]
  7. TERCIAN [Concomitant]
  8. ZOPICLONE [Concomitant]
  9. TERALITHE [Concomitant]

REACTIONS (1)
  - Neutropenia [Recovered/Resolved]
